FAERS Safety Report 9833293 (Version 2)
Quarter: 2014Q2

REPORT INFORMATION
  Report Type: Spontaneous
  Country: US (occurrence: US)
  Receive Date: 20140121
  Receipt Date: 20140415
  Transmission Date: 20141212
  Serious: Yes (Death)
  Sender: FDA-Public Use
  Company Number: US-AMGEN-USASP2014002549

PATIENT
  Age: 87 Year
  Sex: Female
  Weight: 58.96 kg

DRUGS (22)
  1. PROLIA [Suspect]
     Indication: PRODUCT USED FOR UNKNOWN INDICATION
     Dosage: 60 MG/ML, Q6MO
     Route: 058
  2. ENBREL [Concomitant]
     Indication: PRODUCT USED FOR UNKNOWN INDICATION
     Dosage: 50 MG, QWK
     Route: 058
  3. ALDACTONE                          /00006201/ [Concomitant]
     Dosage: 50 MG, UNK
     Route: 048
  4. CALCIUM + VITAMIN D                /01483701/ [Concomitant]
     Dosage: 600 MG/400IU, BID
     Route: 048
  5. CLOBETASOL PROPIONATE [Concomitant]
     Dosage: UNK UNK, BID
  6. DOVONEX [Concomitant]
     Dosage: ALTERNATE WEEK
  7. FOLIC ACID [Concomitant]
     Dosage: 1 MG, UNK
     Route: 048
  8. GLYBURIDE [Concomitant]
     Dosage: 5 MG, UNK
     Route: 048
  9. NOVOLOG [Concomitant]
  10. IRON [Concomitant]
     Dosage: 325 MG, UNK
     Route: 048
  11. LOPRESSOR [Concomitant]
     Dosage: 50 MG, UNK
     Route: 048
  12. MAGNESIUM OXIDE [Concomitant]
     Dosage: 400 MG, UNK
     Route: 048
  13. METHOTREXATE SODIUM [Concomitant]
     Dosage: 25 MG/ML, Q6WK
  14. OMEPRAZOLE [Concomitant]
     Dosage: 20 MG, AS NECESSARY
     Route: 048
  15. PREDNISONE [Concomitant]
     Dosage: 5 MG, UNK
     Route: 048
  16. PROTONIX [Concomitant]
     Dosage: 20 MG, UNK
     Route: 048
  17. RISAMINE [Concomitant]
  18. SYNTHROID [Concomitant]
     Dosage: 50 MUG, UNK
     Route: 048
  19. VENTOLIN HFA [Concomitant]
     Dosage: 108 MUG, AS NECESSARY
  20. VICODIN [Concomitant]
     Dosage: 5 -500MG, AS NECESSARY
     Route: 048
  21. VITAMIN B12                        /00056201/ [Concomitant]
     Dosage: 1000 MUG, QMO
     Route: 048
  22. VITAMIN D                          /00107901/ [Concomitant]
     Dosage: 2000 IU, UNK
     Route: 048

REACTIONS (1)
  - Death [Fatal]
